FAERS Safety Report 23027711 (Version 3)
Quarter: 2023Q4

REPORT INFORMATION
  Report Type: Spontaneous
  Country: GR (occurrence: GR)
  Receive Date: 20231004
  Receipt Date: 20231017
  Transmission Date: 20240110
  Serious: No
  Sender: FDA-Public Use
  Company Number: GR-PFIZER INC-PV202300154380

PATIENT
  Age: 40 Year
  Sex: Female

DRUGS (5)
  1. DAPTOMYCIN [Suspect]
     Active Substance: DAPTOMYCIN
     Indication: Antibiotic therapy
     Dosage: UNK
  2. COLISTIN SULFATE [Suspect]
     Active Substance: COLISTIN SULFATE
     Indication: Antibiotic therapy
     Dosage: UNK
  3. AMPICILLIN SODIUM\SULBACTAM SODIUM [Suspect]
     Active Substance: AMPICILLIN SODIUM\SULBACTAM SODIUM
     Indication: Antibiotic therapy
     Dosage: UNK
  4. TIGECYCLINE [Suspect]
     Active Substance: TIGECYCLINE
     Indication: Antibiotic therapy
     Dosage: UNK
  5. RIFAMPIN [Suspect]
     Active Substance: RIFAMPIN
     Indication: Antibiotic therapy
     Dosage: UNK

REACTIONS (2)
  - Purpura [Recovered/Resolved]
  - Product use in unapproved indication [Unknown]
